FAERS Safety Report 5444934-8 (Version None)
Quarter: 2007Q3

REPORT INFORMATION
  Report Type: 
  Country: None (occurrence: None)
  Receive Date: 20070906
  Receipt Date: 20070829
  Transmission Date: 20080115
  Serious: Yes (Other)
  Sender: FDA-Public Use
  Company Number: B0486007A

PATIENT
  Age: 2 Year
  Sex: Male

DRUGS (1)
  1. CLAMOXYL [Suspect]
     Indication: INFECTION
     Route: 065
     Dates: start: 20070703

REACTIONS (4)
  - ANGIOEDEMA [None]
  - IRRITABILITY [None]
  - PRURITUS [None]
  - URTICARIA [None]
